FAERS Safety Report 8208149-2 (Version None)
Quarter: 2012Q1

REPORT INFORMATION
  Report Type: 
  Country: None (occurrence: None)
  Receive Date: 20120314
  Receipt Date: 20120307
  Transmission Date: 20120608
  Serious: Yes (Death, Hospitalization)
  Sender: FDA-Public Use
  Company Number: PHHO2010BE14491

PATIENT
  Sex: Male
  Weight: 79 kg

DRUGS (19)
  1. EVEROLIMUS [Suspect]
     Indication: LIVER TRANSPLANT
     Dosage: 2 MG, BID
     Route: 048
     Dates: start: 20100324
  2. TACROLIMUS [Suspect]
     Indication: LIVER TRANSPLANT
     Dosage: 1 MG, BID
     Route: 048
     Dates: start: 20100221, end: 20110526
  3. CISPLATIN [Suspect]
  4. CALCIUM CARBONATE [Concomitant]
     Indication: OSTEOPOROSIS PROPHYLAXIS
     Dosage: 100/880 MG/DAY
     Dates: start: 20100625
  5. DEXAMETHASONE [Suspect]
  6. BACTRIM DS [Concomitant]
     Indication: ANTIBIOTIC PROPHYLAXIS
     Dosage: 200 MG, QW2
     Dates: start: 20100901
  7. MEDROL [Suspect]
     Indication: PROPHYLAXIS AGAINST TRANSPLANT REJECTION
     Dosage: 4 MG, QD
     Dates: start: 20100901
  8. NOVOMIX [Concomitant]
     Indication: DIABETES MELLITUS
     Dosage: 10E-12E/DAY
     Dates: start: 20100221
  9. ESCITALOPRAM OXALATE [Concomitant]
     Indication: DEPRESSION
     Dosage: 10 MG, QD
     Dates: start: 20110324
  10. LASIX [Concomitant]
     Indication: PROPHYLAXIS
     Dosage: 40 MG, 1/2 DAYS
     Dates: start: 20101029
  11. ENOXAPARIN SODIUM [Concomitant]
     Indication: THROMBOSIS PROPHYLAXIS
     Dosage: 120 MG, QD
     Dates: start: 20101029
  12. EVEROLIMUS [Suspect]
     Dosage: 2 MG, BID
     Route: 048
     Dates: start: 20110121, end: 20110606
  13. CYTARABINE [Suspect]
  14. TRAZODONE HCL [Concomitant]
     Indication: DEPRESSION
     Dosage: 50 MG, QD
     Dates: start: 20101006
  15. PANTOPRAZOLE SODIUM [Concomitant]
     Indication: PROPHYLAXIS
     Dosage: 20 MG, QD
     Dates: start: 20101027
  16. PERINDOPRIL ERBUMINE [Concomitant]
     Indication: HYPERTENSION
     Dosage: 2.5 MG, QD
     Dates: start: 20100603
  17. ZOVIRAX [Suspect]
     Indication: EPSTEIN-BARR VIRUS INFECTION
     Dosage: UNK
     Dates: start: 20100901
  18. ALLOPURINOL [Concomitant]
     Indication: PROPHYLAXIS
     Dosage: 300 MG, QD
     Dates: start: 20101006
  19. LORAMET [Concomitant]
     Indication: PROPHYLAXIS
     Dosage: 2 MG, QD
     Dates: start: 20101006

REACTIONS (7)
  - DYSPNOEA [None]
  - B-CELL LYMPHOMA [None]
  - TUMOUR LYSIS SYNDROME [None]
  - URINARY TRACT INFECTION [None]
  - PLEURAL EFFUSION [None]
  - NEUTROPENIA [None]
  - NEUTROPENIC SEPSIS [None]
